FAERS Safety Report 11293320 (Version 1)
Quarter: 2015Q3

REPORT INFORMATION
  Report Type: Spontaneous
  Country: FR (occurrence: FR)
  Receive Date: 20150722
  Receipt Date: 20150722
  Transmission Date: 20151125
  Serious: Yes (Hospitalization)
  Sender: FDA-Public Use
  Company Number: FR-BAYER-2015-376113

PATIENT
  Age: 89 Year
  Sex: Male

DRUGS (3)
  1. CIFLOX [Suspect]
     Active Substance: CIPROFLOXACIN
     Dosage: 500 MG, BID
     Route: 048
     Dates: start: 20150615, end: 20150623
  2. OFLOCET [Suspect]
     Active Substance: OFLOXACIN
     Dosage: 200 MG, BID
     Route: 048
     Dates: start: 20150610, end: 20150615
  3. ROCEPHINE [Suspect]
     Active Substance: CEFTRIAXONE SODIUM
     Dosage: 1 G, QD
     Route: 058
     Dates: start: 20150622, end: 20150622

REACTIONS (3)
  - Dermatitis exfoliative [Unknown]
  - Conjunctivitis [Unknown]
  - Blister [Unknown]

NARRATIVE: CASE EVENT DATE: 20150622
